FAERS Safety Report 6256367-5 (Version None)
Quarter: 2009Q3

REPORT INFORMATION
  Report Type: 
  Country: None (occurrence: None)
  Receive Date: 20090706
  Receipt Date: 20090626
  Transmission Date: 20100115
  Serious: Yes (Hospitalization)
  Sender: FDA-Public Use
  Company Number: DE-AMGEN-US353894

PATIENT
  Age: 51 Year
  Sex: Female

DRUGS (6)
  1. ENBREL [Suspect]
     Indication: RHEUMATOID ARTHRITIS
     Route: 058
     Dates: start: 20040901
  2. DELIX PLUS [Concomitant]
  3. IBUPROFEN TABLETS [Concomitant]
  4. EVISTA [Concomitant]
  5. LANTAREL [Concomitant]
     Indication: RHEUMATOID ARTHRITIS
     Route: 048
  6. GLUCOCORTICOIDS [Concomitant]
     Indication: RHEUMATOID ARTHRITIS
     Route: 048

REACTIONS (3)
  - DISLOCATION OF JOINT PROSTHESIS [None]
  - KNEE ARTHROPLASTY [None]
  - SEPSIS [None]
